FAERS Safety Report 5958605-2 (Version None)
Quarter: 2008Q4

REPORT INFORMATION
  Report Type: 
  Country: None (occurrence: None)
  Receive Date: 20081110
  Receipt Date: 20081012
  Transmission Date: 20090506
  Serious: Yes (Death)
  Sender: FDA-Public Use
  Company Number: CHPA2008US18022

PATIENT
  Age: 22 Year
  Sex: Female

DRUGS (6)
  1. DIPHENHYDRAMINE HCL [Suspect]
     Dosage: ORAL
     Route: 048
  2. CODEINE SUL TAB [Suspect]
     Dosage: ORAL
     Route: 048
  3. HYDROCODONE (HYDROCODONE) [Suspect]
     Dosage: ORAL
     Route: 048
  4. MEPERIDINE HCL [Suspect]
     Dosage: ORAL
     Route: 048
  5. PROPOXYPHENE (DEXTROPROPOXYPHENE) [Suspect]
     Dosage: ORAL
     Route: 048
  6. ALL OTHER THERAPEUTIC PRODUCTS (NO INGREDIENTS/SUBSTANCES) [Suspect]
     Dosage: ORAL
     Route: 048

REACTIONS (2)
  - CARDIAC ARREST [None]
  - RESPIRATORY ARREST [None]
